FAERS Safety Report 8139845-3 (Version None)
Quarter: 2012Q1

REPORT INFORMATION
  Report Type: 
  Country: None (occurrence: None)
  Receive Date: 20120215
  Receipt Date: 20120209
  Transmission Date: 20120608
  Serious: Yes (Hospitalization)
  Sender: FDA-Public Use
  Company Number: DE-B.I. PHARMACEUTICALS,INC./RIDGEFIELD-2012-DE-00446DE

PATIENT
  Sex: Male

DRUGS (1)
  1. PRADAXA [Suspect]
     Indication: ATRIAL FIBRILLATION
     Dosage: 300 MG
     Dates: start: 20111101

REACTIONS (8)
  - DECREASED APPETITE [None]
  - HYPERAESTHESIA [None]
  - INSOMNIA [None]
  - FATIGUE [None]
  - MALAISE [None]
  - HAEMORRHAGE [None]
  - DRUG HYPERSENSITIVITY [None]
  - HYPERHIDROSIS [None]
